FAERS Safety Report 9732148 (Version 1)
Quarter: 2013Q4

REPORT INFORMATION
  Report Type: Spontaneous
  Country: US (occurrence: US)
  Receive Date: 20131205
  Receipt Date: 20131205
  Transmission Date: 20140711
  Serious: No
  Sender: FDA-Public Use
  Company Number: US-TEVA-447636USA

PATIENT
  Age: 24 Year
  Sex: Female
  Weight: 104.42 kg

DRUGS (2)
  1. PARAGARD 380A [Suspect]
     Indication: CONTRACEPTION
     Route: 015
     Dates: start: 201212, end: 20130916
  2. LAMICTAL [Concomitant]
     Indication: BIPOLAR DISORDER
     Dosage: 150 MG

REACTIONS (3)
  - Smear cervix abnormal [Recovered/Resolved]
  - Device expulsion [Recovered/Resolved]
  - Abdominal pain [Recovered/Resolved]
